FAERS Safety Report 19943459 (Version 5)
Quarter: 2021Q4

REPORT INFORMATION
  Report Type: Report from Study
  Country: US (occurrence: US)
  Receive Date: 20211011
  Receipt Date: 20211108
  Transmission Date: 20220303
  Serious: Yes (Other)
  Sender: FDA-Public Use
  Company Number: US-ORGANON-O2109USA002533

PATIENT
  Age: 23 Year
  Sex: Female
  Weight: 122 kg

DRUGS (1)
  1. IMPLANON [Suspect]
     Active Substance: ETONOGESTREL
     Dosage: 1 IMPLANT (68 MG ROD) IN LEFT ARM
     Route: 059
     Dates: start: 20210914, end: 20210928

REACTIONS (4)
  - Device dislocation [Recovered/Resolved]
  - Device expulsion [Recovered/Resolved]
  - Hypoaesthesia [Unknown]
  - Implant site pain [Unknown]

NARRATIVE: CASE EVENT DATE: 20210901
